FAERS Safety Report 13257897 (Version 1)
Quarter: 2017Q1

REPORT INFORMATION
  Report Type: Spontaneous
  Country: TR (occurrence: TR)
  Receive Date: 20170221
  Receipt Date: 20170221
  Transmission Date: 20170428
  Serious: Yes (Other)
  Sender: FDA-Public Use
  Company Number: PHHY2017TR024153

PATIENT
  Age: 65 Year
  Sex: Male

DRUGS (1)
  1. ZOLEDRONATE [Suspect]
     Active Substance: ZOLEDRONIC ACID
     Indication: PROSTATE CANCER
     Dosage: UNK
     Route: 065

REACTIONS (7)
  - Purulent discharge [Unknown]
  - Dental paraesthesia [Recovered/Resolved]
  - Erythema [Unknown]
  - Swelling [Recovered/Resolved]
  - Osteonecrosis of jaw [Recovered/Resolved]
  - Pain in jaw [Recovered/Resolved]
  - Exposed bone in jaw [Unknown]
